FAERS Safety Report 25392794 (Version 1)
Quarter: 2025Q2

REPORT INFORMATION
  Report Type: Spontaneous
  Country: FR (occurrence: FR)
  Receive Date: 20250603
  Receipt Date: 20250603
  Transmission Date: 20250716
  Serious: Yes (Other)
  Sender: ABBVIE
  Company Number: None

PATIENT
  Age: 86 Year
  Sex: Male
  Weight: 76 kg

DRUGS (7)
  1. VENETOCLAX [Suspect]
     Active Substance: VENETOCLAX
     Indication: Acute myeloid leukaemia
     Route: 048
     Dates: start: 20250324, end: 20250416
  2. CRESEMBA [Suspect]
     Active Substance: ISAVUCONAZONIUM SULFATE
     Indication: Bronchopulmonary aspergillosis
     Dosage: FORM STRENGTH- 200 MG
     Route: 042
     Dates: start: 20250410, end: 20250411
  3. LANSOPRAZOLE [Suspect]
     Active Substance: LANSOPRAZOLE
     Indication: Gastrooesophageal reflux disease
     Dosage: VIATRIS
     Route: 048
     Dates: start: 20250320, end: 20250425
  4. PIPERACILLIN SODIUM\TAZOBACTAM SODIUM [Suspect]
     Active Substance: PIPERACILLIN SODIUM\TAZOBACTAM SODIUM
     Indication: Febrile neutropenia
     Dosage: VIATIRS
     Route: 042
     Dates: start: 20250325, end: 20250401
  5. PIPERACILLIN SODIUM\TAZOBACTAM SODIUM [Suspect]
     Active Substance: PIPERACILLIN SODIUM\TAZOBACTAM SODIUM
     Indication: Febrile neutropenia
     Route: 042
     Dates: start: 20250403, end: 20250425
  6. PIPERACILLIN SODIUM\TAZOBACTAM SODIUM [Suspect]
     Active Substance: PIPERACILLIN SODIUM\TAZOBACTAM SODIUM
     Indication: Febrile neutropenia
     Route: 042
     Dates: start: 20250402, end: 20250402
  7. CRESEMBA [Suspect]
     Active Substance: ISAVUCONAZONIUM SULFATE
     Indication: Bronchopulmonary aspergillosis
     Dosage: FORM STRENGTH- 100 MG,
     Route: 048
     Dates: start: 20250412, end: 20250421

REACTIONS (3)
  - Purpura [Recovering/Resolving]
  - Rash [Recovering/Resolving]
  - Pustule [Recovering/Resolving]

NARRATIVE: CASE EVENT DATE: 20250414
